FAERS Safety Report 7570752-0 (Version None)
Quarter: 2011Q2

REPORT INFORMATION
  Report Type: 
  Country: None (occurrence: None)
  Receive Date: 20110624
  Receipt Date: 20110613
  Transmission Date: 20111010
  Serious: Yes (Other)
  Sender: FDA-Public Use
  Company Number: ZA-ELI_LILLY_AND_COMPANY-ZA201106006061

PATIENT
  Sex: Male

DRUGS (1)
  1. BYETTA [Suspect]
     Dosage: UNK UNK, UNKNOWN

REACTIONS (3)
  - VOMITING [None]
  - PANCREATITIS [None]
  - PANCREATIC ENZYMES INCREASED [None]
